FAERS Safety Report 8653781 (Version 3)
Quarter: 2013Q4

REPORT INFORMATION
  Report Type: Report from Study
  Country: DE (occurrence: DE)
  Receive Date: 20120709
  Receipt Date: 20131002
  Transmission Date: 20140711
  Serious: Yes (Other)
  Sender: FDA-Public Use
  Company Number: DE-UCBSA-060893

PATIENT
  Sex: Male

DRUGS (10)
  1. CIMZIA [Suspect]
     Indication: RHEUMATOID ARTHRITIS
     Route: 058
     Dates: start: 20110321, end: 201207
  2. OMEPRAZOLE [Concomitant]
     Indication: ACHLORHYDRIA
     Dosage: AS NEEDED
     Dates: start: 20101125
  3. IBUPROFEN [Concomitant]
     Indication: RHEUMATOID ARTHRITIS
     Dosage: 400MG AS NEEDED
     Dates: start: 20101125
  4. PREDNISOLONE [Concomitant]
     Indication: RHEUMATOID ARTHRITIS
     Dates: start: 20110223, end: 20110613
  5. PREDNISOLONE [Concomitant]
     Indication: RHEUMATOID ARTHRITIS
     Dates: start: 20110614
  6. UNACID [Concomitant]
     Indication: BURSITIS
     Dates: start: 20110926, end: 20111002
  7. MTX [Concomitant]
     Indication: RHEUMATOID ARTHRITIS
     Dosage: 20MG QS
     Route: 058
     Dates: start: 20101125, end: 20110613
  8. MTX [Concomitant]
     Indication: RHEUMATOID ARTHRITIS
     Dosage: 15MG QS
     Route: 058
     Dates: start: 20110614
  9. FOLSAN [Concomitant]
     Indication: RHEUMATOID ARTHRITIS
     Dosage: 5MG QS
     Dates: start: 20101125
  10. VIGANTOLETTEN [Concomitant]
     Indication: PROPHYLAXIS
     Dates: start: 20110223

REACTIONS (1)
  - Psoriasis [Recovered/Resolved]
